FAERS Safety Report 12380140 (Version 1)
Quarter: 2016Q2

REPORT INFORMATION
  Report Type: Report from Study
  Country: US (occurrence: US)
  Receive Date: 20160518
  Receipt Date: 20160518
  Transmission Date: 20160815
  Serious: No
  Sender: FDA-Public Use
  Company Number: US-AMGEN-USASP2016060297

PATIENT
  Age: 88 Year
  Sex: Male
  Weight: 65.31 kg

DRUGS (1)
  1. ENBREL [Suspect]
     Active Substance: ETANERCEPT
     Indication: RHEUMATOID ARTHRITIS
     Dosage: 50 MG, QWK
     Route: 065
     Dates: start: 20160308

REACTIONS (13)
  - Adverse drug reaction [Unknown]
  - Asthenia [Unknown]
  - Cough [Unknown]
  - Insomnia [Unknown]
  - Mobility decreased [Unknown]
  - Hypoaesthesia [Unknown]
  - Peripheral swelling [Unknown]
  - Fatigue [Unknown]
  - Contusion [Unknown]
  - Weight increased [Unknown]
  - Feeling abnormal [Unknown]
  - Visual impairment [Unknown]
  - Unevaluable event [Unknown]

NARRATIVE: CASE EVENT DATE: 2016
